FAERS Safety Report 6872542-0 (Version None)
Quarter: 2010Q3

REPORT INFORMATION
  Report Type: 
  Country: None (occurrence: None)
  Receive Date: 20100723
  Receipt Date: 20081119
  Transmission Date: 20110219
  Serious: No
  Sender: FDA-Public Use
  Company Number: US-PFIZER INC-2008081936

PATIENT
  Sex: Female
  Weight: 67.3 kg

DRUGS (3)
  1. CHANTIX [Suspect]
     Indication: SMOKING CESSATION THERAPY
     Dates: start: 20080911
  2. LEVOXYL [Concomitant]
  3. ADVAIR DISKUS 100/50 [Concomitant]

REACTIONS (9)
  - ABNORMAL DREAMS [None]
  - DRUG DOSE OMISSION [None]
  - FALL [None]
  - FATIGUE [None]
  - IMPAIRED WORK ABILITY [None]
  - INSOMNIA [None]
  - MIDDLE INSOMNIA [None]
  - SLEEP DISORDER [None]
  - STRESS [None]
